FAERS Safety Report 4930619-0 (Version None)
Quarter: 2006Q1

REPORT INFORMATION
  Report Type: 
  Country: None (occurrence: None)
  Receive Date: 20060302
  Receipt Date: 20050408
  Transmission Date: 20060701
  Serious: Yes (Hospitalization, Disabling)
  Sender: FDA-Public Use
  Company Number: US-MERCK-0504USA01658

PATIENT
  Age: 48 Year
  Sex: Female
  Weight: 66 kg

DRUGS (1)
  1. VIOXX [Suspect]
     Indication: PAIN MANAGEMENT
     Route: 048
     Dates: start: 20030601, end: 20040609

REACTIONS (5)
  - ANGINA PECTORIS [None]
  - DEPRESSION [None]
  - ISCHAEMIC STROKE [None]
  - LUNG NEOPLASM MALIGNANT [None]
  - RESPIRATORY DISORDER [None]
